FAERS Safety Report 6768639-6 (Version None)
Quarter: 2010Q2

REPORT INFORMATION
  Report Type: 
  Country: None (occurrence: None)
  Receive Date: 20100614
  Receipt Date: 20100608
  Transmission Date: 20101027
  Serious: Yes (Death, Hospitalization)
  Sender: FDA-Public Use
  Company Number: PHHO2010JP07411

PATIENT
  Sex: Male
  Weight: 44 kg

DRUGS (10)
  1. AFINITOR [Suspect]
     Indication: GASTRIC CANCER
     Dosage: CODE NOT BROKEN
     Route: 048
     Dates: start: 20100407, end: 20100509
  2. BLINDED NO TREATMENT RECEIVED NOMED [Suspect]
     Indication: GASTRIC CANCER
     Dosage: CODE NOT BROKEN
     Route: 048
     Dates: start: 20100407, end: 20100509
  3. BLINDED PLACEBO COMP-PLA+ [Suspect]
     Indication: GASTRIC CANCER
     Dosage: CODE NOT BROKEN
     Route: 048
     Dates: start: 20100407, end: 20100509
  4. BLINDED PLACEBO PLACEBO [Suspect]
     Indication: GASTRIC CANCER
     Dosage: CODE NOT BROKEN
     Route: 048
     Dates: start: 20100407, end: 20100509
  5. GLYSENNID [Suspect]
     Indication: CONSTIPATION
     Dosage: 24 MG DAILY
     Route: 048
     Dates: start: 20100510
  6. OXYCODONE HCL [Suspect]
     Indication: CANCER PAIN
     Dosage: 10 MG DAILY
     Route: 048
     Dates: start: 20100303
  7. OXYCONTIN [Suspect]
     Indication: CANCER PAIN
     Dosage: 100 MG
     Dates: start: 20100303
  8. LOXONIN [Suspect]
     Indication: CANCER PAIN
     Dosage: 3DF
     Dates: start: 20100127
  9. SELBEX [Suspect]
     Dosage: 3DF
     Dates: start: 20100127
  10. MAGMITT [Suspect]
     Indication: CONSTIPATION
     Dosage: 6DF
     Dates: start: 20100510

REACTIONS (21)
  - BILIARY TRACT INFECTION [None]
  - CHEILITIS [None]
  - DECREASED APPETITE [None]
  - DEHYDRATION [None]
  - DEPRESSED LEVEL OF CONSCIOUSNESS [None]
  - EYELID OEDEMA [None]
  - FLUSHING [None]
  - GENERAL PHYSICAL HEALTH DETERIORATION [None]
  - HYPERKALAEMIA [None]
  - MALAISE [None]
  - MALIGNANT NEOPLASM PROGRESSION [None]
  - MALNUTRITION [None]
  - MUCOSAL INFLAMMATION [None]
  - OEDEMA [None]
  - PAIN [None]
  - PULSE ABSENT [None]
  - PYREXIA [None]
  - RASH [None]
  - RENAL IMPAIRMENT [None]
  - RESPIRATORY ARREST [None]
  - STOMATITIS [None]
